FAERS Safety Report 17444843 (Version 1)
Quarter: 2020Q1

REPORT INFORMATION
  Report Type: Spontaneous
  Country: GB (occurrence: GB)
  Receive Date: 20200221
  Receipt Date: 20200221
  Transmission Date: 20200409
  Serious: Yes (Other)
  Sender: FDA-Public Use
  Company Number: GB-TEVA-2020-GB-1189772

PATIENT
  Age: 59 Year
  Sex: Male
  Weight: 90 kg

DRUGS (11)
  1. ALENDRONIC ACID [Concomitant]
     Active Substance: ALENDRONIC ACID
     Dosage: 1 DOSAGE FORM
     Dates: start: 20180705
  2. QUININE [Concomitant]
     Active Substance: QUININE
     Dosage: 1 DOSAGE FORM NIGHT, AS DIRECTED BY NEUROLOGY
     Dates: start: 20191219
  3. FOLIC ACID. [Concomitant]
     Active Substance: FOLIC ACID
     Dosage: 1 DOSAGE FORM
     Dates: start: 20190114
  4. CLOBETASONE BUTYRATE [Concomitant]
     Active Substance: CLOBETASONE BUTYRATE
     Dosage: APPLY 1-2 TIMES/DAY
     Dates: start: 20181212
  5. AMLODIPINE [Suspect]
     Active Substance: AMLODIPINE BESYLATE
     Indication: HYPERTENSION
     Dosage: 5 MG
     Route: 065
     Dates: start: 20200127, end: 20200204
  6. LANSOPRAZOLE. [Concomitant]
     Active Substance: LANSOPRAZOLE
     Dosage: 1 DOSAGE FORM
     Dates: start: 20181212
  7. CALCIUM CARBONATE. [Concomitant]
     Active Substance: CALCIUM CARBONATE
     Dosage: 1 DOSAGE FORM
     Dates: start: 20180705
  8. ACETYLSALICYLIC ACID [Concomitant]
     Active Substance: ASPIRIN
     Dosage: 1 DOSAGE FORM
     Dates: start: 20190521
  9. PYRIDOSTIGMINE BROMIDE. [Concomitant]
     Active Substance: PYRIDOSTIGMINE BROMIDE
     Dosage: 90MG, THEN 60MG ALTERNATE DAYS
     Dates: start: 20180705
  10. PREDNISOLONE. [Concomitant]
     Active Substance: PREDNISOLONE
     Dosage: AS DIRECTED BY GP
     Dates: start: 20180705
  11. LISINOPRIL. [Concomitant]
     Active Substance: LISINOPRIL
     Dosage: 1 DOSAGE FORM
     Dates: start: 20191029

REACTIONS (1)
  - Rash macular [Recovering/Resolving]

NARRATIVE: CASE EVENT DATE: 20200204
